FAERS Safety Report 9493999 (Version 1)
Quarter: 2013Q3

REPORT INFORMATION
  Report Type: Spontaneous
  Country: CN (occurrence: CN)
  Receive Date: 20130903
  Receipt Date: 20130903
  Transmission Date: 20140515
  Serious: Yes (Other)
  Sender: FDA-Public Use
  Company Number: CN-ROCHE-1269374

PATIENT
  Sex: Female
  Weight: 11 kg

DRUGS (1)
  1. CEFTRIAXONE SODIUM [Suspect]
     Indication: INFECTION
     Route: 042
     Dates: start: 20121129, end: 20121203

REACTIONS (1)
  - Haemolysis [Recovering/Resolving]
